FAERS Safety Report 8417275-4 (Version None)
Quarter: 2012Q2

REPORT INFORMATION
  Report Type: 
  Country: None (occurrence: None)
  Receive Date: 20120606
  Receipt Date: 20120529
  Transmission Date: 20120825
  Serious: No
  Sender: FDA-Public Use
  Company Number: US-B.I. PHARMACEUTICALS,INC./RIDGEFIELD-2012-BP-12614BP

PATIENT
  Sex: Female

DRUGS (10)
  1. SPIRIVA [Suspect]
     Indication: CHRONIC OBSTRUCTIVE PULMONARY DISEASE
     Dosage: 18 MCG
     Route: 055
     Dates: start: 20120301
  2. ALDACTONE [Concomitant]
     Indication: HYPERTENSION
  3. FISH OIL [Concomitant]
     Indication: SUPPLEMENTATION THERAPY
  4. HALDOL [Concomitant]
     Indication: BIPOLAR DISORDER
  5. POTASSIUM CHLORIDE [Concomitant]
  6. SYNTHROID [Concomitant]
     Indication: HYPOTHYROIDISM
  7. CODEINE [Concomitant]
     Indication: BACK PAIN
  8. DEPAKOTE [Concomitant]
     Indication: BIPOLAR DISORDER
  9. AMBIEN [Concomitant]
     Indication: INSOMNIA
  10. VENTOLIN [Concomitant]
     Indication: SEASONAL ALLERGY

REACTIONS (1)
  - RENAL CYST [None]
